FAERS Safety Report 7336396-0 (Version None)
Quarter: 2011Q1

REPORT INFORMATION
  Report Type: 
  Country: None (occurrence: None)
  Receive Date: 20110307
  Receipt Date: 20101216
  Transmission Date: 20110831
  Serious: No
  Sender: FDA-Public Use
  Company Number: US-B.I. PHARMACEUTICALS,INC./RIDGEFIELD-2011-BP-04151BP

PATIENT
  Sex: Female

DRUGS (1)
  1. PRADAXA [Suspect]

REACTIONS (5)
  - VOMITING [None]
  - DYSPHAGIA [None]
  - ABDOMINAL DISCOMFORT [None]
  - APHAGIA [None]
  - WEIGHT DECREASED [None]
